FAERS Safety Report 9332415 (Version 4)
Quarter: 2013Q4

REPORT INFORMATION
  Report Type: Spontaneous
  Country: FR (occurrence: FR)
  Receive Date: 20130606
  Receipt Date: 20131106
  Transmission Date: 20140711
  Serious: Yes (Life-Threatening, Hospitalization)
  Sender: FDA-Public Use
  Company Number: FR-VERTEX PHARMACEUTICALS INC-2013-006790

PATIENT
  Age: 64 Year
  Sex: Female

DRUGS (8)
  1. INCIVO [Suspect]
     Indication: HEPATITIS C
     Dosage: 2250 MG, QD
     Route: 048
     Dates: start: 20130202, end: 20130430
  2. PEGINTERFERON ALFA 2A [Suspect]
     Indication: HEPATITIS C
     Dosage: 180 ?G, QW
     Route: 058
     Dates: start: 20130202, end: 20130509
  3. RIBAVIRIN [Suspect]
     Indication: HEPATITIS C
     Dosage: 600 MG, QD
     Route: 048
     Dates: start: 20130202, end: 20130509
  4. ZOLOFT [Concomitant]
  5. KEPPRA [Concomitant]
     Dosage: 750 MG, BID
  6. LEVOTHYROX [Concomitant]
  7. TAHOR [Concomitant]
  8. INEXIUM [Concomitant]

REACTIONS (1)
  - Sepsis [Recovered/Resolved]
